FAERS Safety Report 6102891-5 (Version None)
Quarter: 2009Q1

REPORT INFORMATION
  Report Type: 
  Country: None (occurrence: None)
  Receive Date: 20090303
  Receipt Date: 20090303
  Transmission Date: 20090719
  Serious: Yes (Life-Threatening, Hospitalization)
  Sender: FDA-Public Use
  Company Number: None

PATIENT
  Age: 36 Year
  Sex: Female
  Weight: 97.5234 kg

DRUGS (2)
  1. ATIVAN [Suspect]
     Indication: ANXIETY
     Dosage: 1-2MG AT BEDTIME OR DAILY DAILY PO
     Route: 048
     Dates: start: 20090207, end: 20090221
  2. ATIVAN [Suspect]
     Indication: INSOMNIA
     Dosage: 1-2MG AT BEDTIME OR DAILY DAILY PO
     Route: 048
     Dates: start: 20090207, end: 20090221

REACTIONS (2)
  - DRUG WITHDRAWAL CONVULSIONS [None]
  - GRAND MAL CONVULSION [None]
